FAERS Safety Report 11725969 (Version 1)
Quarter: 2015Q4

REPORT INFORMATION
  Report Type: Spontaneous
  Country: US (occurrence: US)
  Receive Date: 20151110
  Receipt Date: 20151110
  Transmission Date: 20160304
  Serious: No
  Sender: FDA-Public Use
  Company Number: US-ELI_LILLY_AND_COMPANY-US201110003155

PATIENT
  Age: 61 Year
  Sex: Male

DRUGS (1)
  1. FORTEO [Suspect]
     Active Substance: TERIPARATIDE
     Indication: OSTEOPENIA
     Dosage: 20 UG, QD
     Dates: start: 201103

REACTIONS (5)
  - Off label use [Unknown]
  - Nephrolithiasis [Not Recovered/Not Resolved]
  - Intentional product misuse [Unknown]
  - Renal pain [Unknown]
  - Back pain [Unknown]

NARRATIVE: CASE EVENT DATE: 201103
